FAERS Safety Report 4970590-9 (Version None)
Quarter: 2006Q2

REPORT INFORMATION
  Report Type: 
  Country: None (occurrence: None)
  Receive Date: 20060412
  Receipt Date: 20050930
  Transmission Date: 20061013
  Serious: Yes (Hospitalization)
  Sender: FDA-Public Use
  Company Number: US-MERCK-0510USA00199

PATIENT
  Age: 45 Year
  Sex: Male
  Weight: 108 kg

DRUGS (2)
  1. VIOXX [Suspect]
     Indication: OSTEOARTHRITIS
     Route: 048
     Dates: start: 20011108, end: 20031214
  2. VIOXX [Suspect]
     Indication: PAIN
     Route: 048
     Dates: start: 20011108, end: 20031214

REACTIONS (26)
  - ANGINA PECTORIS [None]
  - ANGINA UNSTABLE [None]
  - ANXIETY [None]
  - AORTIC VALVE SCLEROSIS [None]
  - CHEST PAIN [None]
  - CORONARY ARTERY DISEASE [None]
  - CYST [None]
  - DIARRHOEA [None]
  - DIVERTICULUM [None]
  - DYSPHAGIA [None]
  - FATIGUE [None]
  - GASTRITIS [None]
  - GASTROOESOPHAGEAL REFLUX DISEASE [None]
  - HYPERGLYCAEMIA [None]
  - HYPERLIPIDAEMIA [None]
  - HYPERTENSION [None]
  - MITRAL VALVE CALCIFICATION [None]
  - MYALGIA [None]
  - MYOCARDIAL INFARCTION [None]
  - OESOPHAGEAL DISCOMFORT [None]
  - OESOPHAGEAL SPASM [None]
  - OESOPHAGEAL STENOSIS [None]
  - POLYP [None]
  - UMBILICAL HERNIA [None]
  - UMBILICAL HERNIA REPAIR [None]
  - UPPER RESPIRATORY TRACT INFECTION [None]
